FAERS Safety Report 7275459-5 (Version None)
Quarter: 2011Q1

REPORT INFORMATION
  Report Type: 
  Country: None (occurrence: None)
  Receive Date: 20110202
  Receipt Date: 20110202
  Transmission Date: 20110831
  Serious: Yes (Hospitalization, Other)
  Sender: FDA-Public Use
  Company Number: None

PATIENT
  Age: 19 Year
  Sex: Male
  Weight: 82.7 kg

DRUGS (1)
  1. HEPARIN SODIUM [Suspect]
     Indication: ANTICOAGULANT THERAPY

REACTIONS (4)
  - ACTIVATED PARTIAL THROMBOPLASTIN TIME SHORTENED [None]
  - PRODUCT MEASURED POTENCY ISSUE [None]
  - PRODUCT LABEL ISSUE [None]
  - THERAPEUTIC RESPONSE DECREASED [None]
